FAERS Safety Report 23268382 (Version 2)
Quarter: 2024Q1

REPORT INFORMATION
  Report Type: Spontaneous
  Country: JP (occurrence: JP)
  Receive Date: 20231206
  Receipt Date: 20240123
  Transmission Date: 20240409
  Serious: Yes (Hospitalization, Other)
  Sender: FDA-Public Use
  Company Number: JP-BAUSCH-BL-2023-015626

PATIENT
  Age: 71 Year
  Sex: Male
  Weight: 57.5 kg

DRUGS (6)
  1. BRODALUMAB [Suspect]
     Active Substance: BRODALUMAB
     Indication: Psoriatic arthropathy
     Dosage: 210 MG, 1X/2 WEEKS
     Route: 058
     Dates: start: 20170913, end: 20171206
  2. HUMIRA [Suspect]
     Active Substance: ADALIMUMAB
     Indication: Psoriatic arthropathy
     Dosage: 80 MG, 1X/2 WEEKS
     Route: 058
     Dates: start: 20161226, end: 20170125
  3. TALTZ [Suspect]
     Active Substance: IXEKIZUMAB
     Indication: Psoriatic arthropathy
     Dosage: 80 MG, 1X/2 WEEKS;
     Route: 058
     Dates: start: 20170315, end: 20170524
  4. OLMESARTAN MEDOXOMIL [Concomitant]
     Active Substance: OLMESARTAN MEDOXOMIL
     Indication: Product used for unknown indication
     Dates: start: 20140604
  5. LASIX [Concomitant]
     Active Substance: FUROSEMIDE
     Indication: Product used for unknown indication
     Dates: start: 20170531, end: 20170913
  6. FEBUXOSTAT [Concomitant]
     Active Substance: FEBUXOSTAT
     Indication: Product used for unknown indication
     Dates: start: 20170607

REACTIONS (1)
  - IgA nephropathy [Recovering/Resolving]

NARRATIVE: CASE EVENT DATE: 20171108
